FAERS Safety Report 5527952-0 (Version None)
Quarter: 2007Q4

REPORT INFORMATION
  Report Type: 
  Country: None (occurrence: None)
  Receive Date: 20071126
  Receipt Date: 20071126
  Transmission Date: 20080405
  Serious: Yes (Death, Life-Threatening, Hospitalization, Other)
  Sender: FDA-Public Use
  Company Number: None

PATIENT
  Age: 65 Year
  Sex: Male
  Weight: 54.4316 kg

DRUGS (1)
  1. FENTANYL [Suspect]
     Indication: ABDOMINAL PAIN UPPER
     Dosage: 50 MCG EERY 48 HOURS; 25MCG SAME
     Dates: start: 20070809, end: 20071109

REACTIONS (6)
  - BLINDNESS [None]
  - DEAFNESS [None]
  - MUSCLE SPASMS [None]
  - PYREXIA [None]
  - STARVATION [None]
  - VOMITING [None]
